FAERS Safety Report 9282432 (Version 1)
Quarter: 2013Q2

REPORT INFORMATION
  Report Type: Report from Study
  Country: CA (occurrence: CA)
  Receive Date: 20130510
  Receipt Date: 20130510
  Transmission Date: 20140414
  Serious: Yes (Other)
  Sender: FDA-Public Use
  Company Number: CA-ROCHE-1223074

PATIENT
  Sex: Female
  Weight: 80 kg

DRUGS (3)
  1. ACTEMRA [Suspect]
     Indication: JUVENILE IDIOPATHIC ARTHRITIS
     Route: 042
     Dates: start: 2010
  2. ALVESCO [Concomitant]
  3. VENTOLIN [Concomitant]

REACTIONS (2)
  - Tonsillar hypertrophy [Not Recovered/Not Resolved]
  - Oropharyngeal pain [Not Recovered/Not Resolved]
